FAERS Safety Report 16907718 (Version 1)
Quarter: 2019Q4

REPORT INFORMATION
  Report Type: Spontaneous
  Country: US (occurrence: US)
  Receive Date: 20190819
  Receipt Date: 20190819
  Transmission Date: 20200122
  Serious: Yes (Other)
  Sender: FDA-Public Use
  Company Number: None

PATIENT
  Sex: Male

DRUGS (8)
  1. PYRIDOSTIGM [Concomitant]
  2. IBU [Concomitant]
     Active Substance: IBUPROFEN
  3. MESTINON [Concomitant]
     Active Substance: PYRIDOSTIGMINE BROMIDE
  4. GAMUNEX-C [Suspect]
     Active Substance: HUMAN IMMUNOGLOBULIN G
     Indication: PRODUCT USED FOR UNKNOWN INDICATION
     Dosage: ?          OTHER STRENGTH:20/200 GM/ML;OTHER FREQUENCY:3 CONSECUTIVE DAYS;?
     Route: 042
     Dates: start: 20190627
  5. AZATHIOPRINE. [Concomitant]
     Active Substance: AZATHIOPRINE
  6. PENTOXIFYLLI [Concomitant]
  7. GABAPENTIN. [Concomitant]
     Active Substance: GABAPENTIN
  8. GAMUNEX-C [Suspect]
     Active Substance: HUMAN IMMUNOGLOBULIN G
     Indication: PRODUCT USED FOR UNKNOWN INDICATION
     Dosage: ?          OTHER STRENGTH:10/100 GM/ML;?
     Dates: start: 20190627

REACTIONS (3)
  - Jaundice [None]
  - Periorbital oedema [None]
  - Eye disorder [None]
